FAERS Safety Report 8061000-6 (Version None)
Quarter: 2012Q1

REPORT INFORMATION
  Report Type: 
  Country: None (occurrence: None)
  Receive Date: 20120120
  Receipt Date: 20120111
  Transmission Date: 20120608
  Serious: Yes (Other)
  Sender: FDA-Public Use
  Company Number: JP-MERCK-1201USA01980

PATIENT
  Age: 77 Year
  Sex: Male

DRUGS (2)
  1. FOSAMAX [Suspect]
     Indication: RHEUMATOID VASCULITIS
     Route: 048
  2. CORTICOSTEROIDS (UNSPECIFIED) [Concomitant]
     Indication: RHEUMATOID VASCULITIS
     Route: 048

REACTIONS (2)
  - OSTEOMYELITIS [None]
  - MUCOSAL INFLAMMATION [None]
